FAERS Safety Report 9892808 (Version 4)
Quarter: 2014Q1

REPORT INFORMATION
  Report Type: Report from Study
  Country: CA (occurrence: CA)
  Receive Date: 20140213
  Receipt Date: 20140329
  Transmission Date: 20141002
  Serious: Yes (Life-Threatening, Hospitalization)
  Sender: FDA-Public Use
  Company Number: CA-ROCHE-1236143

PATIENT
  Age: 59 Year
  Sex: Male
  Weight: 96.8 kg

DRUGS (21)
  1. ACTEMRA [Suspect]
     Indication: RHEUMATOID ARTHRITIS
     Route: 042
     Dates: start: 201102
  2. ACTEMRA [Suspect]
     Route: 042
     Dates: start: 20130610
  3. ACTEMRA [Suspect]
     Route: 042
     Dates: start: 20130801
  4. METFORMIN [Concomitant]
  5. DIAZEPAM [Concomitant]
  6. PREDNISONE [Concomitant]
  7. OXYCOCET [Concomitant]
     Dosage: AS REQUIRED
     Route: 065
  8. OXYNEO [Concomitant]
  9. FLOVENT [Concomitant]
  10. SALBUTAMOL [Concomitant]
     Dosage: AS REQUIRED
     Route: 065
  11. DIPROSALIC [Concomitant]
     Route: 065
  12. DIPROSONE [Concomitant]
  13. RAMIPRIL [Concomitant]
  14. DIAMICRON [Concomitant]
  15. OMEPRAZOLE [Concomitant]
  16. RISEDRONATE [Concomitant]
  17. ATORVASTATIN [Concomitant]
  18. LORATADINE [Concomitant]
  19. TRAZODONE [Concomitant]
  20. ASA [Concomitant]
  21. DOMPERIDONE [Concomitant]

REACTIONS (13)
  - Myocardial infarction [Unknown]
  - Dyspnoea [Unknown]
  - Arthralgia [Not Recovered/Not Resolved]
  - Joint stiffness [Not Recovered/Not Resolved]
  - Blood pressure increased [Not Recovered/Not Resolved]
  - Weight decreased [Not Recovered/Not Resolved]
  - Drug ineffective [Unknown]
  - Eyelid infection [Not Recovered/Not Resolved]
  - Ocular hyperaemia [Not Recovered/Not Resolved]
  - Pain [Unknown]
  - Eye infection [Not Recovered/Not Resolved]
  - Pain in extremity [Not Recovered/Not Resolved]
  - Arthralgia [Not Recovered/Not Resolved]
